FAERS Safety Report 4596087-6 (Version None)
Quarter: 2005Q1

REPORT INFORMATION
  Report Type: 
  Country: None (occurrence: None)
  Receive Date: 20050225
  Receipt Date: 20050210
  Transmission Date: 20050727
  Serious: Yes (Hospitalization)
  Sender: FDA-Public Use
  Company Number: SE-2005-002014

PATIENT
  Age: 36 Year
  Sex: Male

DRUGS (1)
  1. BETAFERON (INTERFERON BETA - 1B) INJECTION, [Suspect]
     Indication: MULTIPLE SCLEROSIS
     Dosage: SUBCUTANEOUS
     Route: 058
     Dates: start: 19960101, end: 20040101

REACTIONS (5)
  - ABSCESS SOFT TISSUE [None]
  - BODY TEMPERATURE INCREASED [None]
  - INFLAMMATION [None]
  - SCAR [None]
  - SKIN REACTION [None]
